FAERS Safety Report 20444065 (Version 1)
Quarter: 2022Q1

REPORT INFORMATION
  Report Type: Spontaneous
  Country: US (occurrence: None)
  Receive Date: 20220207
  Receipt Date: 20220207
  Transmission Date: 20220423
  Serious: Yes (Death)
  Sender: FDA-Public Use
  Company Number: None

PATIENT
  Age: 72 Year
  Sex: Male
  Weight: 73.7 kg

DRUGS (6)
  1. BARICITINIB [Suspect]
     Active Substance: BARICITINIB
     Indication: COVID-19
     Dosage: FREQUENCY : DAILY;?
     Route: 048
     Dates: start: 20211225, end: 20220107
  2. remdesivir 200 mg IV x 1, then 100 mg IV daily [Concomitant]
     Dates: start: 20211223, end: 20211227
  3. dexamethasone 6 mg PO daily [Concomitant]
     Dates: start: 20211223, end: 20220101
  4. enoxaparin 80 mg SC Q12H [Concomitant]
     Dates: start: 20211223, end: 20211231
  5. heparin IV continuous infusion 80 units/kg x 1, then 18 units/kg/hr [Concomitant]
     Dates: start: 20211231, end: 20220106
  6. epoprostenol continuous inhalation [Concomitant]
     Dates: start: 20220105, end: 20220106

REACTIONS (7)
  - Peripheral artery occlusion [None]
  - Splenic embolism [None]
  - Renal embolism [None]
  - Respiratory failure [None]
  - Post procedural complication [None]
  - General physical health deterioration [None]
  - Disease complication [None]

NARRATIVE: CASE EVENT DATE: 20211231
